FAERS Safety Report 4912000-3 (Version None)
Quarter: 2006Q1

REPORT INFORMATION
  Report Type: 
  Country: None (occurrence: None)
  Receive Date: 20060213
  Receipt Date: 20060125
  Transmission Date: 20060701
  Serious: Yes (Death)
  Sender: FDA-Public Use
  Company Number: 2005JP002434

PATIENT
  Age: 71 Year
  Sex: Male

DRUGS (3)
  1. FUNGUARD (MICAFUNGIN)INJECTION [Suspect]
     Dosage: 150 MG, D, IV DRIP
     Route: 041
     Dates: start: 20051201, end: 20051205
  2. SULPERAZONE (CEFOPERAZONE SODIUM, SULBACTAM SODIUM) INJECTION [Concomitant]
  3. UNASYN [Concomitant]

REACTIONS (3)
  - INTERSTITIAL LUNG DISEASE [None]
  - RASH [None]
  - URTICARIA [None]
